FAERS Safety Report 20503809 (Version 3)
Quarter: 2022Q2

REPORT INFORMATION
  Report Type: Spontaneous
  Country: JP (occurrence: JP)
  Receive Date: 20220222
  Receipt Date: 20220419
  Transmission Date: 20220721
  Serious: Yes (Death, Other)
  Sender: FDA-Public Use
  Company Number: JP-MSD-M2022-06353

PATIENT
  Age: 80 Year
  Sex: Male

DRUGS (9)
  1. MOLNUPIRAVIR [Suspect]
     Active Substance: MOLNUPIRAVIR
     Indication: COVID-19 treatment
     Dosage: 800 MILLIGRAM, BID
     Route: 048
     Dates: start: 20220207, end: 20220211
  2. PREDNISOLONE [Concomitant]
     Active Substance: PREDNISOLONE
     Dosage: 5 MILLIGRAM
     Route: 065
  3. MIRABEGRON [Concomitant]
     Active Substance: MIRABEGRON
     Dosage: 25 MILLIGRAM
     Route: 065
  4. TAMSULOSIN HYDROCHLORIDE [Concomitant]
     Active Substance: TAMSULOSIN HYDROCHLORIDE
     Dosage: 0.2 MILLIGRAM
     Route: 065
  5. FUROSEMIDE [Concomitant]
     Active Substance: FUROSEMIDE
     Dosage: 40 MILLIGRAM
     Route: 065
  6. METILDIGOXIN [Concomitant]
     Active Substance: METILDIGOXIN
     Dosage: 0.5 MILLIGRAM
     Route: 065
  7. SPIRONOLACTONE [Concomitant]
     Active Substance: SPIRONOLACTONE
     Dosage: 25 MILLIGRAM
     Route: 065
  8. MINOCYCLINE HYDROCHLORIDE [Concomitant]
     Active Substance: MINOCYCLINE HYDROCHLORIDE
     Indication: Pneumonia bacterial
     Dosage: 1 DOSAGE FORM, BID
     Route: 048
     Dates: start: 20220207, end: 202202
  9. MINOCYCLINE HYDROCHLORIDE [Concomitant]
     Active Substance: MINOCYCLINE HYDROCHLORIDE
     Indication: Pneumonia aspiration

REACTIONS (4)
  - Pneumonia bacterial [Fatal]
  - Pneumonia aspiration [Fatal]
  - Interstitial lung disease [Fatal]
  - Respiratory failure [Fatal]

NARRATIVE: CASE EVENT DATE: 20220201
